FAERS Safety Report 5949320-X (Version None)
Quarter: 2008Q4

REPORT INFORMATION
  Report Type: 
  Country: None (occurrence: None)
  Receive Date: 20081021
  Receipt Date: 20080602
  Transmission Date: 20090506
  Serious: Yes (Other)
  Sender: FDA-Public Use
  Company Number: HQWYE599426AUG04

PATIENT
  Age: 64 Year
  Sex: Female
  Weight: 83.99 kg

DRUGS (6)
  1. PREMARIN [Suspect]
     Indication: MENOPAUSE
  2. CYCRIN [Suspect]
     Indication: MENOPAUSE
  3. MEDROXYPROGESTERONE [Suspect]
  4. MEDROXYPROGESTERONE [Suspect]
     Indication: MENOPAUSE
  5. PREMPRO [Suspect]
     Indication: MENOPAUSE
  6. PROVERA [Suspect]

REACTIONS (2)
  - BREAST CANCER [None]
  - BREAST PAIN [None]
